FAERS Safety Report 6169102-6 (Version None)
Quarter: 2009Q2

REPORT INFORMATION
  Report Type: 
  Country: None (occurrence: None)
  Receive Date: 20090424
  Receipt Date: 20081204
  Transmission Date: 20091009
  Serious: No
  Sender: FDA-Public Use
  Company Number: ALL1-2008-03478

PATIENT
  Age: 6 Year
  Sex: Female
  Weight: 20 kg

DRUGS (1)
  1. VYVANSE [Suspect]
     Indication: ATTENTION DEFICIT/HYPERACTIVITY DISORDER
     Dosage: 30 MG, 1X/DAY:QD, ORAL
     Route: 048
     Dates: start: 20081204

REACTIONS (5)
  - DIARRHOEA [None]
  - EYE SWELLING [None]
  - LIP DRY [None]
  - RASH GENERALISED [None]
  - VOMITING [None]
